FAERS Safety Report 14597183 (Version 1)
Quarter: 2018Q1

REPORT INFORMATION
  Report Type: Spontaneous
  Country: RO (occurrence: RO)
  Receive Date: 20180305
  Receipt Date: 20180305
  Transmission Date: 20180509
  Serious: Yes (Other)
  Sender: FDA-Public Use
  Company Number: RO-ROCHE-2078563

PATIENT
  Sex: Female

DRUGS (1)
  1. GAZYVARO [Suspect]
     Active Substance: OBINUTUZUMAB
     Indication: CHRONIC LYMPHOCYTIC LEUKAEMIA
     Dosage: 100 MG ON FIRST DAY AND 900 MG ON SECOND DAY
     Route: 042

REACTIONS (4)
  - Atrial fibrillation [Recovered/Resolved]
  - Pyrexia [Unknown]
  - Peau d^orange [Unknown]
  - Oedema [Unknown]
